FAERS Safety Report 5710653-3 (Version None)
Quarter: 2008Q2

REPORT INFORMATION
  Report Type: 
  Country: None (occurrence: None)
  Receive Date: 20080415
  Receipt Date: 20080402
  Transmission Date: 20081010
  Serious: Yes (Congenital Anomaly)
  Sender: FDA-Public Use
  Company Number: 2008029729

PATIENT
  Sex: Male

DRUGS (2)
  1. FRAGMIN [Suspect]
     Indication: THROMBOPHLEBITIS SUPERFICIAL
     Dosage: 12500 I.U. (12500 I.U., DAILY), PLACENTAL
     Dates: start: 20030101, end: 20030101
  2. FRAXIFORTE (NADROPARIN CALCIUM) [Suspect]
     Indication: THROMBOPHLEBITIS SUPERFICIAL
     Dosage: 0.8 ML (0.8 ML, DAILY), PLACENTAL

REACTIONS (3)
  - DENTAL CARIES [None]
  - DRUG EXPOSURE DURING PREGNANCY [None]
  - SKIN REACTION [None]
